FAERS Safety Report 15023345 (Version 7)
Quarter: 2018Q3

REPORT INFORMATION
  Report Type: Report from Study
  Country: US (occurrence: US)
  Receive Date: 20180618
  Receipt Date: 20180813
  Transmission Date: 20181010
  Serious: Yes (Death, Other)
  Sender: FDA-Public Use
  Company Number: US-B.I. PHARMACEUTICALS,INC./RIDGEFIELD-2017-BI-039196

PATIENT
  Age: 77 Year
  Sex: Male

DRUGS (1)
  1. OFEV [Suspect]
     Active Substance: NINTEDANIB
     Indication: IDIOPATHIC PULMONARY FIBROSIS
     Route: 048
     Dates: start: 20170612

REACTIONS (16)
  - Oedema peripheral [Unknown]
  - Productive cough [Unknown]
  - Anxiety [Recovered/Resolved with Sequelae]
  - Cardiomegaly [Not Recovered/Not Resolved]
  - Fatigue [Not Recovered/Not Resolved]
  - Dizziness [Not Recovered/Not Resolved]
  - Dyspnoea [Unknown]
  - Dyspnoea exertional [Unknown]
  - Dizziness [Unknown]
  - Death [Fatal]
  - Inflammation [Unknown]
  - Oxygen saturation decreased [Recovered/Resolved with Sequelae]
  - Cough [Recovered/Resolved]
  - Constipation [Unknown]
  - Cough [Unknown]
  - Dizziness [Recovered/Resolved with Sequelae]

NARRATIVE: CASE EVENT DATE: 20171130
